FAERS Safety Report 21729617 (Version 3)
Quarter: 2023Q1

REPORT INFORMATION
  Report Type: Spontaneous
  Country: US (occurrence: None)
  Receive Date: 20221214
  Receipt Date: 20230126
  Transmission Date: 20230418
  Serious: Yes (Death, Hospitalization)
  Sender: FDA-Public Use
  Company Number: US-ROCHE-3240018

PATIENT
  Age: 69 Year
  Sex: Female

DRUGS (52)
  1. PEGASYS [Suspect]
     Active Substance: PEGINTERFERON ALFA-2A
     Indication: Cutaneous T-cell lymphoma
     Route: 058
  2. PEGASYS [Suspect]
     Active Substance: PEGINTERFERON ALFA-2A
     Indication: Cutaneous T-cell lymphoma
  3. PROVENTIL HFA [Concomitant]
     Active Substance: ALBUTEROL SULFATE
  4. ELIQUIS [Concomitant]
     Active Substance: APIXABAN
  5. VITAMIN C [Concomitant]
     Active Substance: ASCORBIC ACID
  6. ASPIRIN [Concomitant]
     Active Substance: ASPIRIN
     Route: 048
  7. LIPITOR [Concomitant]
     Active Substance: ATORVASTATIN CALCIUM
     Route: 048
  8. TARGRETIN [Concomitant]
     Active Substance: BEXAROTENE
     Route: 048
  9. HIBICLENS [Concomitant]
     Active Substance: CHLORHEXIDINE GLUCONATE
     Route: 061
  10. CINNAMON\HERBALS [Concomitant]
     Active Substance: CINNAMON\HERBALS
     Route: 048
  11. TEMOVATE [Concomitant]
     Active Substance: CLOBETASOL PROPIONATE
     Route: 061
  12. CATAPRES [Concomitant]
     Active Substance: CLONIDINE HYDROCHLORIDE
     Route: 048
  13. CARDIZEM CD [Concomitant]
     Active Substance: DILTIAZEM HYDROCHLORIDE
  14. BENADRYL [Concomitant]
     Active Substance: DIPHENHYDRAMINE HYDROCHLORIDE
     Route: 048
  15. PEPCID [Concomitant]
     Active Substance: FAMOTIDINE
     Route: 048
  16. FERROUS SULFATE [Concomitant]
     Active Substance: FERROUS SULFATE
     Route: 048
  17. LIDEX [Concomitant]
     Active Substance: FLUOCINONIDE
     Route: 061
  18. LASIX [Concomitant]
     Active Substance: FUROSEMIDE
     Route: 048
  19. GABAPENTIN [Concomitant]
     Active Substance: GABAPENTIN
     Route: 048
  20. DIABETA [Concomitant]
     Active Substance: GLYBURIDE
     Route: 048
  21. ATARAX [Concomitant]
     Active Substance: HYDROXYZINE HYDROCHLORIDE
     Route: 048
  22. VASCEPA [Concomitant]
     Active Substance: ICOSAPENT ETHYL
     Route: 048
  23. ASCORBIC ACID\IRON [Concomitant]
     Active Substance: ASCORBIC ACID\IRON
     Route: 048
  24. SYNTHROID [Concomitant]
     Active Substance: LEVOTHYROXINE SODIUM
     Route: 048
  25. EMLA [Concomitant]
     Active Substance: LIDOCAINE\PRILOCAINE
     Route: 061
  26. COZAAR [Concomitant]
     Active Substance: LOSARTAN POTASSIUM
     Route: 048
  27. MAGNESIUM [Concomitant]
     Active Substance: MAGNESIUM
     Route: 048
  28. ANTIVERT [Concomitant]
     Active Substance: MECLIZINE HYDROCHLORIDE
     Route: 048
  29. GLUCOPHAGE [Concomitant]
     Active Substance: METFORMIN HYDROCHLORIDE
     Route: 048
  30. LOPRESSOR [Concomitant]
     Active Substance: METOPROLOL TARTRATE
     Route: 048
  31. MYRBETRIQ [Concomitant]
     Active Substance: MIRABEGRON
     Route: 048
  32. ASMANEX [Concomitant]
     Active Substance: MOMETASONE FUROATE
  33. SINGULAIR [Concomitant]
     Active Substance: MONTELUKAST SODIUM
     Route: 048
  34. MULTAQ [Concomitant]
     Active Substance: DRONEDARONE
     Route: 048
  35. MYCOSTATIN [Concomitant]
     Active Substance: NYSTATIN
     Route: 048
  36. BENICAR [Concomitant]
     Active Substance: OLMESARTAN MEDOXOMIL
     Route: 048
  37. LOVAZA [Concomitant]
     Active Substance: OMEGA-3-ACID ETHYL ESTERS
     Route: 048
  38. PRILOSEC [Concomitant]
     Active Substance: OMEPRAZOLE MAGNESIUM
     Route: 048
  39. ZOFRAN [Concomitant]
     Active Substance: ONDANSETRON HYDROCHLORIDE
  40. SEREVENT DISKUS [Concomitant]
     Active Substance: SALMETEROL XINAFOATE
  41. BETAPACE [Concomitant]
     Active Substance: SOTALOL HYDROCHLORIDE
     Route: 048
  42. BACTRIM DS [Concomitant]
     Active Substance: SULFAMETHOXAZOLE\TRIMETHOPRIM
     Route: 048
  43. THIAMINE [Concomitant]
     Active Substance: THIAMINE
     Route: 048
  44. KENALOG [Concomitant]
     Active Substance: TRIAMCINOLONE ACETONIDE
     Route: 061
  45. FIBERCON [Concomitant]
     Active Substance: CALCIUM POLYCARBOPHIL
  46. VALTREX [Concomitant]
     Active Substance: VALACYCLOVIR HYDROCHLORIDE
     Route: 048
  47. VITAMIN B6;VITAMIN B12 [Concomitant]
     Route: 048
  48. NUFOLA [Concomitant]
     Route: 048
  49. VITAMIN D3 VITAMIN K1 [Concomitant]
     Route: 048
  50. SONATA [Concomitant]
     Active Substance: ZALEPLON
     Route: 048
  51. ZINC GLUCONATE [Concomitant]
     Active Substance: ZINC GLUCONATE
     Route: 048
  52. AMBIEN CR [Concomitant]
     Active Substance: ZOLPIDEM TARTRATE
     Route: 048

REACTIONS (27)
  - Lung disorder [Fatal]
  - Cardiac arrest [Fatal]
  - Off label use [Unknown]
  - Obstructive airways disorder [Unknown]
  - Multi-organ disorder [Unknown]
  - Acute kidney injury [Unknown]
  - Hypoalbuminaemia [Unknown]
  - Staphylococcal bacteraemia [Unknown]
  - Weight decreased [Unknown]
  - Pneumonia [Unknown]
  - Acute respiratory failure [Unknown]
  - Thrombocytopenia [Unknown]
  - Neutropenia [Unknown]
  - Procalcitonin increased [Unknown]
  - Brain natriuretic peptide increased [Unknown]
  - Decreased appetite [Unknown]
  - Taste disorder [Unknown]
  - Paranasal sinus hypersecretion [Unknown]
  - Hypotension [Unknown]
  - Mental status changes [Unknown]
  - White blood cell count decreased [Unknown]
  - Haemoglobin decreased [Unknown]
  - Haematocrit decreased [Unknown]
  - Pleural effusion [Unknown]
  - Blood sodium decreased [Unknown]
  - Nausea [Unknown]
  - Vomiting [Unknown]

NARRATIVE: CASE EVENT DATE: 20220101
